FAERS Safety Report 20820849 (Version 1)
Quarter: 2022Q2

REPORT INFORMATION
  Report Type: Spontaneous
  Country: US (occurrence: None)
  Receive Date: 20220512
  Receipt Date: 20220512
  Transmission Date: 20220720
  Serious: Yes (Other)
  Sender: FDA-Public Use
  Company Number: None

PATIENT
  Age: 59 Year
  Sex: Female
  Weight: 77.85 kg

DRUGS (41)
  1. EVUSHELD [Suspect]
     Active Substance: CILGAVIMAB\TIXAGEVIMAB
     Indication: COVID-19 immunisation
     Route: 030
     Dates: start: 20220510
  2. Dreamstation apap machine [Concomitant]
  3. ENBREL [Concomitant]
     Active Substance: ETANERCEPT
  4. ephinephrine injection auto [Concomitant]
  5. CYMBALTA [Concomitant]
     Active Substance: DULOXETINE HYDROCHLORIDE
  6. LEFLUNOMIDE [Concomitant]
     Active Substance: LEFLUNOMIDE
  7. ESTRADIOL [Concomitant]
     Active Substance: ESTRADIOL
  8. FOLIC ACID [Concomitant]
     Active Substance: FOLIC ACID
  9. plaquinel [Concomitant]
  10. GABAPENTIN [Concomitant]
     Active Substance: GABAPENTIN
  11. BUPROPION [Concomitant]
     Active Substance: BUPROPION
  12. VENTOLIN [Concomitant]
     Active Substance: ALBUTEROL SULFATE
  13. BOTOX [Concomitant]
     Active Substance: ONABOTULINUMTOXINA
  14. BACLOFEN [Concomitant]
     Active Substance: BACLOFEN
  15. hydrocodon/acetaminophen, [Concomitant]
  16. azelastin hci nasal spray [Concomitant]
  17. nyastatin cream [Concomitant]
  18. ketoconozole shampoo [Concomitant]
  19. fluocinomide topical solution [Concomitant]
  20. triamcinilon acetonide cream [Concomitant]
  21. VITAMINS [Concomitant]
     Active Substance: VITAMINS
  22. LOW DOSE ASPIRIN [Concomitant]
     Active Substance: ASPIRIN
  23. FLONASE [Concomitant]
     Active Substance: FLUTICASONE PROPIONATE
  24. MELATONIN [Concomitant]
     Active Substance: MELATONIN
  25. DIETARY SUPPLEMENT [Concomitant]
     Active Substance: DIETARY SUPPLEMENT
  26. ROLAIDS [Concomitant]
     Active Substance: CALCIUM CARBONATE\MAGNESIUM HYDROXIDE
  27. BIOTIN [Concomitant]
     Active Substance: BIOTIN
  28. PROBIOTICS NOS [Concomitant]
     Active Substance: PROBIOTICS NOS
  29. VITAMIN C [Concomitant]
     Active Substance: ASCORBIC ACID
  30. ZINC [Concomitant]
     Active Substance: ZINC
  31. Voltron gel [Concomitant]
  32. MAGNESIUM [Concomitant]
     Active Substance: MAGNESIUM
  33. CALCIUM\VITAMIN D [Concomitant]
     Active Substance: CALCIUM\VITAMIN D
  34. maralax [Concomitant]
  35. DOCUSATE SODIUM [Concomitant]
     Active Substance: DOCUSATE SODIUM
  36. FAMOTIDINE [Concomitant]
     Active Substance: FAMOTIDINE
  37. Claritin or Zyrtec [Concomitant]
  38. BENADRYL [Concomitant]
     Active Substance: DIPHENHYDRAMINE HYDROCHLORIDE
  39. FISH OIL [Concomitant]
     Active Substance: FISH OIL
  40. musinex [Concomitant]
  41. arthritis strength tyneol [Concomitant]

REACTIONS (2)
  - Pruritus [None]
  - Urticaria [None]

NARRATIVE: CASE EVENT DATE: 20220511
